FAERS Safety Report 9171505 (Version 2)
Quarter: 2013Q2

REPORT INFORMATION
  Report Type: Spontaneous
  Country: US (occurrence: None)
  Receive Date: 20130128
  Receipt Date: 20130416
  Transmission Date: 20140414
  Serious: Yes (Death, Hospitalization)
  Sender: FDA-Public Use
  Company Number: 2012PROUSA02400

PATIENT
  Age: 56 Year
  Sex: Male
  Weight: 81.6 kg

DRUGS (1)
  1. PROVENGE (SIPULEUCEL-T) SUSPENSION, 250 ML [Suspect]
     Indication: PROSTATE CANCER METASTATIC
     Dosage: 250 ML, SINGLE, INTRAVENOUS?12/07/2012  TO  12/07/2012
     Route: 042
     Dates: start: 20121207, end: 20121207

REACTIONS (2)
  - Pneumonia [None]
  - Device occlusion [None]
